FAERS Safety Report 13948893 (Version 1)
Quarter: 2017Q3

REPORT INFORMATION
  Report Type: Spontaneous
  Country: IT (occurrence: IT)
  Receive Date: 20170908
  Receipt Date: 20170908
  Transmission Date: 20171128
  Serious: Yes (Other)
  Sender: FDA-Public Use
  Company Number: IT-ROCHE-1990500

PATIENT
  Age: 67 Year
  Sex: Male

DRUGS (3)
  1. ACTILYSE [Suspect]
     Active Substance: ALTEPLASE
     Indication: PULMONARY EMBOLISM
     Route: 065
  2. HEPARIN [Concomitant]
     Active Substance: HEPARIN SODIUM
     Indication: PULMONARY EMBOLISM
  3. ACTILYSE [Suspect]
     Active Substance: ALTEPLASE
     Indication: THROMBOSIS

REACTIONS (2)
  - Epistaxis [Unknown]
  - Intra-abdominal haemorrhage [Unknown]
